FAERS Safety Report 4564977-6 (Version None)
Quarter: 2005Q1

REPORT INFORMATION
  Report Type: 
  Country: None (occurrence: None)
  Receive Date: 20050131
  Receipt Date: 20050120
  Transmission Date: 20050727
  Serious: Yes (Disabling)
  Sender: FDA-Public Use
  Company Number: JP-JNJFOC-20041200762

PATIENT
  Age: 63 Year
  Sex: Male

DRUGS (4)
  1. TAVANIC [Suspect]
     Indication: PROPHYLAXIS
     Route: 049
     Dates: start: 20040927, end: 20041001
  2. ZOXAN [Concomitant]
  3. PRAVASTATIN [Concomitant]
  4. OMEPRAZOLE [Concomitant]

REACTIONS (3)
  - DIFFICULTY IN WALKING [None]
  - FASCIITIS [None]
  - TENDONITIS [None]
